FAERS Safety Report 15258958 (Version 1)
Quarter: 2018Q3

REPORT INFORMATION
  Report Type: Spontaneous
  Country: US (occurrence: US)
  Receive Date: 20180718
  Receipt Date: 20180718
  Transmission Date: 20181010
  Serious: Yes (Hospitalization)
  Sender: FDA-Public Use
  Company Number: None

PATIENT
  Age: 67 Year
  Sex: Male

DRUGS (2)
  1. ATENOLOL. [Suspect]
     Active Substance: ATENOLOL
     Indication: HYPERTENSION
     Route: 048
     Dates: start: 20130327
  2. FUROSEMIDE. [Suspect]
     Active Substance: FUROSEMIDE
     Indication: OEDEMA
     Route: 048
     Dates: start: 20150928

REACTIONS (7)
  - Acute kidney injury [None]
  - Dizziness [None]
  - Hypotension [None]
  - Electrocardiogram QT prolonged [None]
  - Hypovolaemia [None]
  - Syncope [None]
  - Fall [None]

NARRATIVE: CASE EVENT DATE: 20180706
